FAERS Safety Report 15098427 (Version 2)
Quarter: 2025Q2

REPORT INFORMATION
  Report Type: Report from Study
  Country: US (occurrence: US)
  Receive Date: 20180702
  Receipt Date: 20250409
  Transmission Date: 20250716
  Serious: Yes (Hospitalization, Other)
  Sender: JOHNSON AND JOHNSON
  Company Number: US-JNJFOC-20180639040

PATIENT
  Age: 20 Year
  Sex: Male

DRUGS (1)
  1. RIVAROXABAN [Suspect]
     Active Substance: RIVAROXABAN
     Indication: Pulmonary embolism
     Route: 048

REACTIONS (3)
  - Cerebral haemorrhage [Unknown]
  - Cerebral mass effect [Unknown]
  - Fall [Unknown]
